FAERS Safety Report 14306950 (Version 1)
Quarter: 2017Q4

REPORT INFORMATION
  Report Type: Report from Study
  Country: GB (occurrence: GB)
  Receive Date: 20171220
  Receipt Date: 20171220
  Transmission Date: 20180321
  Serious: Yes (Other)
  Sender: FDA-Public Use
  Company Number: GB-ROCHE-1972204

PATIENT
  Sex: Male

DRUGS (1)
  1. ESBRIET [Suspect]
     Active Substance: PIRFENIDONE
     Indication: IDIOPATHIC PULMONARY FIBROSIS
     Route: 048
     Dates: start: 20170608

REACTIONS (6)
  - Eructation [Unknown]
  - Diarrhoea [Unknown]
  - Flatulence [Unknown]
  - Constipation [Unknown]
  - Intestinal obstruction [Unknown]
  - Hypoacusis [Unknown]
